FAERS Safety Report 7347387 (Version 2)
Quarter: 2012Q4

REPORT INFORMATION
  Report Type: 
  Country: US (occurrence: US)
  Receive Date: 20100407
  Receipt Date: 20120924
  Transmission Date: 20130627
  Serious: Yes (Hospitalization, Other)
  Sender: FDA-Public Use
  Company Number: US-ELI_LILLY_AND_COMPANY-US201004000535

PATIENT
  Age: 77 None
  Sex: Female

DRUGS (4)
  1. HUMALOG LISPRO [Suspect]
     Indication: DIABETES MELLITUS
     Dosage: UNK, as needed
  2. HUMALOG LISPRO [Suspect]
     Dosage: UNK, as needed
  3. HUMALOG LISPRO [Suspect]
     Indication: DIABETES MELLITUS
     Dosage: UNK UNK, prn
  4. LANTUS [Concomitant]
     Dosage: UNK UNK, bid

REACTIONS (7)
  - Deafness unilateral [Not Recovered/Not Resolved]
  - Brain stem stroke [Recovered/Resolved]
  - Blood glucose increased [Unknown]
  - Hypoacusis [Not Recovered/Not Resolved]
  - Neuropathy peripheral [Not Recovered/Not Resolved]
  - Dizziness [Not Recovered/Not Resolved]
  - Gait disturbance [Not Recovered/Not Resolved]
